FAERS Safety Report 24766939 (Version 1)
Quarter: 2024Q4

REPORT INFORMATION
  Report Type: Spontaneous
  Country: US (occurrence: US)
  Receive Date: 20241223
  Receipt Date: 20241223
  Transmission Date: 20250115
  Serious: No
  Sender: SANOFI AVENTIS
  Company Number: US-SA-2024SA377547

PATIENT
  Sex: Male
  Weight: 124.73 kg

DRUGS (3)
  1. DUPIXENT [Suspect]
     Active Substance: DUPILUMAB
     Indication: Product used for unknown indication
     Dosage: 200 MG, QOW
     Route: 058
  2. TADALAFIL [Concomitant]
     Active Substance: TADALAFIL
     Dosage: UNK
  3. BREYNA [Concomitant]
     Active Substance: BUDESONIDE\FORMOTEROL FUMARATE
     Dosage: UNK

REACTIONS (2)
  - Dyspepsia [Recovering/Resolving]
  - Oesophagitis [Recovering/Resolving]
